FAERS Safety Report 4613758-3 (Version None)
Quarter: 2005Q1

REPORT INFORMATION
  Report Type: 
  Country: None (occurrence: None)
  Receive Date: 20050321
  Receipt Date: 20031121
  Transmission Date: 20050727
  Serious: Yes (Hospitalization, Disabling)
  Sender: FDA-Public Use
  Company Number: US-MERCK-0311USA02523

PATIENT
  Age: 48 Year
  Sex: Male

DRUGS (6)
  1. VIOXX [Suspect]
     Indication: PAIN IN EXTREMITY
     Route: 048
     Dates: start: 20020101, end: 20020824
  2. VIOXX [Suspect]
     Indication: FLAT FEET
     Route: 048
     Dates: start: 20020101, end: 20020824
  3. TOPROL-XL [Concomitant]
     Indication: HYPERTENSION
     Route: 065
     Dates: start: 20020101, end: 20030331
  4. ZOCOR [Concomitant]
     Indication: HYPERCHOLESTEROLAEMIA
     Route: 048
     Dates: start: 20020117, end: 20030331
  5. VIAGRA [Concomitant]
     Route: 065
     Dates: start: 20020117
  6. DIOVAN [Concomitant]
     Route: 065
     Dates: start: 20020117, end: 20020405

REACTIONS (20)
  - BLOOD CHOLESTEROL INCREASED [None]
  - BLOOD TRIGLYCERIDES INCREASED [None]
  - BUNDLE BRANCH BLOCK [None]
  - CORONARY ARTERY DISEASE [None]
  - CORONARY ARTERY STENOSIS [None]
  - DEPRESSION [None]
  - DYSPEPSIA [None]
  - FEAR [None]
  - HEADACHE [None]
  - INCISION SITE ABSCESS [None]
  - INJURY [None]
  - LOW DENSITY LIPOPROTEIN INCREASED [None]
  - MYOCARDIAL INFARCTION [None]
  - NECK PAIN [None]
  - PLEURAL EFFUSION [None]
  - RECTAL HAEMORRHAGE [None]
  - ROAD TRAFFIC ACCIDENT [None]
  - SLEEP DISORDER [None]
  - SUPRAVENTRICULAR EXTRASYSTOLES [None]
  - WEIGHT INCREASED [None]
